FAERS Safety Report 7828814-6 (Version None)
Quarter: 2011Q4

REPORT INFORMATION
  Report Type: 
  Country: None (occurrence: None)
  Receive Date: 20111020
  Receipt Date: 20110926
  Transmission Date: 20120403
  Serious: Yes (Other)
  Sender: FDA-Public Use
  Company Number: IT-BAYER-2011-091670

PATIENT
  Age: 77 Year
  Sex: Female

DRUGS (1)
  1. ACETYLSALICYLIC ACID SRT [Suspect]
     Dosage: 1 DF, QD
     Route: 048
     Dates: start: 20100801, end: 20110731

REACTIONS (1)
  - CONJUNCTIVAL HAEMORRHAGE [None]
